FAERS Safety Report 10735289 (Version 1)
Quarter: 2015Q1

REPORT INFORMATION
  Report Type: Spontaneous
  Country: US (occurrence: US)
  Receive Date: 20150125
  Receipt Date: 20150125
  Transmission Date: 20150721
  Serious: Yes (Other)
  Sender: FDA-Public Use
  Company Number: US-GILEAD-2015-0133495

PATIENT
  Age: 43 Year
  Sex: Female

DRUGS (3)
  1. VELETRI [Concomitant]
     Active Substance: EPOPROSTENOL
  2. ADEMPAS [Concomitant]
     Active Substance: RIOCIGUAT
  3. LETAIRIS [Suspect]
     Active Substance: AMBRISENTAN
     Indication: PRODUCT USED FOR UNKNOWN INDICATION
     Dosage: 10 MG, QD
     Route: 065
     Dates: start: 20141126

REACTIONS (2)
  - Lower respiratory tract infection [Unknown]
  - Gastrointestinal disorder [Unknown]
